FAERS Safety Report 5959400-0 (Version None)
Quarter: 2008Q4

REPORT INFORMATION
  Report Type: 
  Country: None (occurrence: None)
  Receive Date: 20081120
  Receipt Date: 20080815
  Transmission Date: 20090506
  Serious: No
  Sender: FDA-Public Use
  Company Number: A0743103A

PATIENT

DRUGS (3)
  1. VERAMYST [Suspect]
     Indication: DRUG USE FOR UNKNOWN INDICATION
     Route: 065
  2. NASACORT AQ [Concomitant]
  3. SINGULAIR [Concomitant]

REACTIONS (1)
  - HEADACHE [None]
